FAERS Safety Report 5156320-9 (Version None)
Quarter: 2006Q4

REPORT INFORMATION
  Report Type: 
  Country: None (occurrence: None)
  Receive Date: 20061122
  Receipt Date: 20061009
  Transmission Date: 20070319
  Serious: Yes (Other)
  Sender: FDA-Public Use
  Company Number: CN-GLAXOSMITHKLINE-B0441789A

PATIENT
  Age: 17 Year
  Sex: Male

DRUGS (1)
  1. ZENTEL [Suspect]
     Route: 048

REACTIONS (8)
  - ABDOMINAL PAIN [None]
  - ALOPECIA [None]
  - APLASTIC ANAEMIA [None]
  - DIARRHOEA [None]
  - GRANULOCYTE COUNT DECREASED [None]
  - PYREXIA [None]
  - STOMACH DISCOMFORT [None]
  - WHITE BLOOD CELL COUNT DECREASED [None]
